FAERS Safety Report 9665146 (Version 2)
Quarter: 2013Q4

REPORT INFORMATION
  Report Type: Spontaneous
  Country: FI (occurrence: FI)
  Receive Date: 20131101
  Receipt Date: 20131101
  Transmission Date: 20140711
  Serious: Yes (Hospitalization, Other)
  Sender: FDA-Public Use
  Company Number: FI-009507513-1011FIN00013

PATIENT
  Age: 66 Year
  Sex: Female

DRUGS (4)
  1. ALENDRONATE SODIUM (+) CHOLECALCIFEROL [Suspect]
     Indication: OSTEOPOROSIS
     Dosage: 70  MG, QW
     Route: 048
     Dates: start: 2008, end: 2009
  2. ALENDRONATE SODIUM (+) CHOLECALCIFEROL [Suspect]
     Dosage: 10 MG, QD
     Route: 048
     Dates: start: 2004, end: 2008
  3. CALCIUM (UNSPECIFIED) (+) VITAMIN D (UNSPECIFIED) [Concomitant]
     Route: 048
  4. OBSIDAN (FERROUS GLYCINE SULFATE) [Concomitant]
     Route: 048

REACTIONS (2)
  - Femur fracture [Recovered/Resolved]
  - Intramedullary rod insertion [Recovered/Resolved]
